FAERS Safety Report 16627348 (Version 2)
Quarter: 2019Q4

REPORT INFORMATION
  Report Type: Spontaneous
  Country: JP (occurrence: JP)
  Receive Date: 20190724
  Receipt Date: 20191224
  Transmission Date: 20200122
  Serious: Yes (Hospitalization, Other)
  Sender: FDA-Public Use
  Company Number: JP-MYLANLABS-2019M1069456

PATIENT
  Age: 77 Year
  Sex: Male
  Weight: 57.2 kg

DRUGS (1)
  1. ACICLOVIR MYLAN [Suspect]
     Active Substance: ACYCLOVIR
     Indication: HERPES ZOSTER
     Dosage: 800 MILLIGRAM, QD
     Route: 048
     Dates: start: 201811

REACTIONS (17)
  - Mononuclear cell count abnormal [Recovering/Resolving]
  - Dysstasia [Recovering/Resolving]
  - Dyskinesia [Recovering/Resolving]
  - Toxic encephalopathy [Recovering/Resolving]
  - Hallucination, visual [Recovering/Resolving]
  - Hallucination, auditory [Recovering/Resolving]
  - Abnormal behaviour [Recovering/Resolving]
  - Speech disorder [Recovering/Resolving]
  - Tremor [Recovering/Resolving]
  - Myoclonus [Recovered/Resolved]
  - Vital functions abnormal [Recovering/Resolving]
  - Nephrogenic anaemia [Recovering/Resolving]
  - CSF protein increased [Recovering/Resolving]
  - Herpes zoster meningoencephalitis [Recovering/Resolving]
  - Blood creatinine increased [Recovering/Resolving]
  - Altered state of consciousness [Recovered/Resolved]
  - Disorientation [Recovered/Resolved]

NARRATIVE: CASE EVENT DATE: 2018
